FAERS Safety Report 18588661 (Version 2)
Quarter: 2020Q4

REPORT INFORMATION
  Report Type: Spontaneous
  Country: US (occurrence: US)
  Receive Date: 20201207
  Receipt Date: 20201211
  Transmission Date: 20210114
  Serious: Yes (Other)
  Sender: FDA-Public Use
  Company Number: US-PFIZER INC-2020477512

PATIENT
  Age: 78 Year
  Sex: Female

DRUGS (1)
  1. VYNDAQEL [Suspect]
     Active Substance: TAFAMIDIS MEGLUMINE
     Indication: AMYLOIDOSIS
     Dosage: 80 MG, DAILY

REACTIONS (4)
  - Off label use [Unknown]
  - Cardiac amyloidosis [Unknown]
  - Dyspnoea [Recovered/Resolved]
  - Dyspnoea exertional [Unknown]
